FAERS Safety Report 8008564-6 (Version None)
Quarter: 2011Q4

REPORT INFORMATION
  Report Type: 
  Country: None (occurrence: None)
  Receive Date: 20111227
  Receipt Date: 20111214
  Transmission Date: 20120403
  Serious: Yes (Other)
  Sender: FDA-Public Use
  Company Number: US-ROCHE-1022748

PATIENT
  Sex: Female

DRUGS (3)
  1. AVASTIN [Suspect]
     Indication: BREAST CANCER METASTATIC
     Route: 065
  2. PACLITAXEL [Suspect]
     Indication: BREAST CANCER METASTATIC
     Route: 065
  3. FILGRASTIM [Concomitant]
     Route: 065

REACTIONS (10)
  - FEBRILE NEUTROPENIA [None]
  - DIARRHOEA [None]
  - NEUTROPENIA [None]
  - PERIPHERAL SENSORY NEUROPATHY [None]
  - HYPERTENSION [None]
  - NAIL DISORDER [None]
  - FATIGUE [None]
  - BONE PAIN [None]
  - ARTHRALGIA [None]
  - NAUSEA [None]
